FAERS Safety Report 25072940 (Version 2)
Quarter: 2025Q2

REPORT INFORMATION
  Report Type: Spontaneous
  Country: US (occurrence: US)
  Receive Date: 20250313
  Receipt Date: 20250514
  Transmission Date: 20250717
  Serious: No
  Sender: SANOFI AVENTIS
  Company Number: US-SA-2025SA074006

PATIENT
  Age: 55 Year
  Sex: Female

DRUGS (3)
  1. DUPIXENT [Suspect]
     Active Substance: DUPILUMAB
     Indication: Asthma
     Route: 058
     Dates: start: 202502, end: 202502
  2. DUPIXENT [Suspect]
     Active Substance: DUPILUMAB
     Indication: Chronic obstructive pulmonary disease
     Dosage: 200 MG, QOW
     Route: 058
     Dates: start: 2025, end: 2025
  3. DUPIXENT [Suspect]
     Active Substance: DUPILUMAB
     Dosage: 200 MG, QOW
     Route: 058
     Dates: start: 20250504

REACTIONS (8)
  - Injection site pain [Unknown]
  - Dyspnoea [Recovered/Resolved]
  - Memory impairment [Unknown]
  - Vomiting [Unknown]
  - Diarrhoea [Unknown]
  - Dehydration [Unknown]
  - Blood potassium decreased [Unknown]
  - Gastroenteritis viral [Unknown]

NARRATIVE: CASE EVENT DATE: 20250101
